FAERS Safety Report 9026498 (Version 1)
Quarter: 2013Q1

REPORT INFORMATION
  Report Type: Spontaneous
  Country: GB (occurrence: None)
  Receive Date: 20130107
  Receipt Date: 20130107
  Transmission Date: 20140127
  Serious: Yes (Disabling)
  Sender: FDA-Public Use
  Company Number: 2012-01926

PATIENT
  Age: 71 Year
  Sex: Female

DRUGS (2)
  1. LISINOPRIL [Suspect]
     Indication: HYPERTENSION
     Route: 048
  2. LEVOTHYROXINE [Concomitant]

REACTIONS (2)
  - Labyrinthitis [None]
  - Tinnitus [None]
